FAERS Safety Report 10039128 (Version 2)
Quarter: 2014Q2

REPORT INFORMATION
  Report Type: Spontaneous
  Country: DE (occurrence: DE)
  Receive Date: 20140326
  Receipt Date: 20140523
  Transmission Date: 20141212
  Serious: Yes (Other)
  Sender: FDA-Public Use
  Company Number: PHHY2014DE034659

PATIENT
  Age: 80 Year
  Sex: Male

DRUGS (1)
  1. VOLTAREN RESINAT [Suspect]
     Indication: OSTEOARTHRITIS
     Dosage: UNK UKN, UNK
     Route: 048
     Dates: start: 2008

REACTIONS (1)
  - Polyneuropathy [Not Recovered/Not Resolved]
